FAERS Safety Report 6712702-2 (Version None)
Quarter: 2010Q2

REPORT INFORMATION
  Report Type: 
  Country: None (occurrence: None)
  Receive Date: 20100506
  Receipt Date: 20100427
  Transmission Date: 20101027
  Serious: Yes (Hospitalization, Other)
  Sender: FDA-Public Use
  Company Number: JP-JNJFOC-20091206848

PATIENT
  Sex: Female
  Weight: 47 kg

DRUGS (7)
  1. DOXORUBICIN HCL [Suspect]
     Indication: MALIGNANT PERITONEAL NEOPLASM
     Route: 042
  2. DOXORUBICIN HCL [Suspect]
     Route: 042
  3. DOXORUBICIN HCL [Suspect]
     Route: 042
  4. DOXORUBICIN HCL [Suspect]
     Route: 042
  5. DOXORUBICIN HCL [Suspect]
     Route: 042
  6. MAGMITT [Concomitant]
     Indication: CONSTIPATION
     Route: 048
  7. DEXALTIN [Concomitant]
     Indication: STOMATITIS
     Route: 049

REACTIONS (1)
  - CEREBRAL HAEMORRHAGE [None]
